FAERS Safety Report 4411666-4 (Version None)
Quarter: 2004Q3

REPORT INFORMATION
  Report Type: 
  Country: None (occurrence: None)
  Receive Date: 20040727
  Receipt Date: 20040714
  Transmission Date: 20050211
  Serious: Yes (Other)
  Sender: FDA-Public Use
  Company Number: FR-JNJFOC-20040704174

PATIENT
  Age: 41 Year
  Sex: Male

DRUGS (1)
  1. INFLIXIMAB((INFLIXIMAB, RECOMBINANT) LYOPHILIZED POWDER [Suspect]
     Indication: ANKYLOSING SPONDYLITIS
     Dosage: INTRAVENOUS
     Route: 042

REACTIONS (2)
  - BUDD-CHIARI SYNDROME [None]
  - PAROXYSMAL NOCTURNAL HAEMOGLOBINURIA [None]
